FAERS Safety Report 7936186-1 (Version None)
Quarter: 2011Q4

REPORT INFORMATION
  Report Type: 
  Country: None (occurrence: None)
  Receive Date: 20111123
  Receipt Date: 20111121
  Transmission Date: 20120403
  Serious: Yes (Hospitalization, Other)
  Sender: FDA-Public Use
  Company Number: US-PFIZER INC-2011284752

PATIENT
  Age: 88 Year
  Sex: Female
  Weight: 57.596 kg

DRUGS (11)
  1. DILANTIN [Suspect]
     Dosage: 400 MG, DAILY
     Dates: start: 20111101
  2. CENTRUM [Concomitant]
     Dosage: UNK
  3. VITAMIN D [Concomitant]
     Dosage: UNK
  4. PROTONIX [Suspect]
     Indication: GASTRIC DISORDER
     Dosage: UNK
  5. DILANTIN [Suspect]
     Indication: CONVULSION
     Dosage: 350 MG, DAILY
     Dates: start: 20100801, end: 20110101
  6. LOVENOX [Suspect]
     Indication: GASTRIC DISORDER
     Dosage: UNK
  7. ASPIRIN [Concomitant]
     Dosage: UNK
  8. XOPENEX [Concomitant]
     Indication: DYSPNOEA
     Dosage: UNK, EVERY 8 HOURS
  9. FEOSOL [Concomitant]
     Indication: MINERAL SUPPLEMENTATION
     Dosage: UNK
  10. SOTALOL [Concomitant]
     Indication: ATRIAL FIBRILLATION
     Dosage: UNK
  11. ALENDRONATE SODIUM [Concomitant]
     Dosage: UNK

REACTIONS (5)
  - ACCIDENT [None]
  - CONVULSION [None]
  - SOMNOLENCE [None]
  - ANTICONVULSANT DRUG LEVEL ABNORMAL [None]
  - FATIGUE [None]
